FAERS Safety Report 10012224 (Version 1)
Quarter: 2014Q1

REPORT INFORMATION
  Report Type: Spontaneous
  Country: US (occurrence: US)
  Receive Date: 20140312
  Receipt Date: 20140312
  Transmission Date: 20141002
  Serious: No
  Sender: FDA-Public Use
  Company Number: US-PFIZER INC-2014068490

PATIENT
  Age: 63 Year
  Sex: Female
  Weight: 83.9 kg

DRUGS (1)
  1. TIKOSYN [Suspect]
     Indication: ATRIAL FIBRILLATION
     Dosage: 250 UG, DAILY
     Dates: start: 20130930, end: 201401

REACTIONS (1)
  - Drug ineffective [Unknown]
